FAERS Safety Report 20769125 (Version 5)
Quarter: 2022Q2

REPORT INFORMATION
  Report Type: Report from Study
  Country: US (occurrence: US)
  Receive Date: 20220429
  Receipt Date: 20220620
  Transmission Date: 20220720
  Serious: Yes (Hospitalization, Other)
  Sender: FDA-Public Use
  Company Number: US-NOVARTISTESTPH-NVSC2022US098692

PATIENT
  Sex: Male

DRUGS (1)
  1. ENTRESTO [Suspect]
     Active Substance: SACUBITRIL\VALSARTAN
     Indication: Product used for unknown indication
     Dosage: 1 DOSAGE FORM, BID (24.26 MG/KG)
     Route: 048
     Dates: start: 20220214, end: 20220513

REACTIONS (4)
  - Hypotension [Unknown]
  - Cardiac failure [Unknown]
  - Chest discomfort [Recovering/Resolving]
  - Stress [Recovering/Resolving]
